FAERS Safety Report 25483935 (Version 1)
Quarter: 2025Q2

REPORT INFORMATION
  Report Type: Spontaneous
  Country: GB (occurrence: GB)
  Receive Date: 20250626
  Receipt Date: 20250626
  Transmission Date: 20250717
  Serious: Yes (Hospitalization, Other)
  Sender: PFIZER
  Company Number: None

PATIENT
  Sex: Male

DRUGS (3)
  1. SULFASALAZINE [Suspect]
     Active Substance: SULFASALAZINE
     Dosage: 1 G, 3X/DAY (1G THREE TIMES A DAY)
     Dates: start: 20230127, end: 20250622
  2. AMLODIPINE [Concomitant]
     Active Substance: AMLODIPINE BESYLATE
     Dates: start: 20230308
  3. SULFASALAZINE [Concomitant]
     Active Substance: SULFASALAZINE
     Dates: start: 20230123

REACTIONS (1)
  - Interstitial lung disease [Not Recovered/Not Resolved]
